FAERS Safety Report 8310377 (Version 7)
Quarter: 2017Q2

REPORT INFORMATION
  Report Type: Spontaneous
  Country: GB (occurrence: GB)
  Receive Date: 20111223
  Receipt Date: 20170623
  Transmission Date: 20170830
  Serious: Yes (Hospitalization, Other)
  Sender: FDA-Public Use
  Company Number: GB-PFIZER INC-2011308637

PATIENT
  Age: 32 Year
  Sex: Male
  Weight: 61 kg

DRUGS (16)
  1. MAGNESIUM [Concomitant]
     Active Substance: MAGNESIUM
     Dosage: UNK
  2. PROPOFOL. [Concomitant]
     Active Substance: PROPOFOL
     Dosage: UNK
  3. MIDAZOLAM [Concomitant]
     Active Substance: MIDAZOLAM HYDROCHLORIDE
     Dosage: UNK
  4. KEPPRA [Suspect]
     Active Substance: LEVETIRACETAM
     Indication: SEIZURE
     Dosage: 250 MG, 2X/DAY
     Dates: start: 20111103, end: 20111103
  5. DOCUSATE [Concomitant]
     Active Substance: DOCUSATE
     Dosage: UNK
  6. METOCLOPRAMIDE. [Concomitant]
     Active Substance: METOCLOPRAMIDE
     Dosage: UNK
  7. PABRINEX [Concomitant]
     Dosage: UNK
  8. CHLORHEXIDINE [Concomitant]
     Active Substance: CHLORHEXIDINE
     Dosage: UNK
  9. MAGNESIUM SULFATE. [Concomitant]
     Active Substance: MAGNESIUM SULFATE
     Dosage: UNK
  10. ALFENTANIL. [Concomitant]
     Active Substance: ALFENTANIL
     Dosage: UNK
  11. BETAINE/POLYHEXANIDE [Concomitant]
     Dosage: UNK
  12. EPILIM [Suspect]
     Active Substance: VALPROATE SODIUM
     Dosage: 300 MG, 2X/DAY
     Route: 042
     Dates: start: 20111031, end: 20111103
  13. FRUSEMIDE [Concomitant]
     Active Substance: FUROSEMIDE
     Dosage: UNK
  14. OMEPRAZOLE. [Concomitant]
     Active Substance: OMEPRAZOLE
     Dosage: UNK
  15. SENNA [Concomitant]
     Active Substance: SENNA LEAF\SENNOSIDES\SENNOSIDES A AND B
     Dosage: UNK
  16. VANCOMYCIN [Suspect]
     Active Substance: VANCOMYCIN
     Dosage: 1000 MG, 2X/DAY
     Route: 042
     Dates: start: 201111, end: 20111107

REACTIONS (9)
  - Neutropenia [Recovering/Resolving]
  - Eosinophilia [Recovering/Resolving]
  - Renal impairment [Unknown]
  - Transaminases increased [Recovering/Resolving]
  - Tubulointerstitial nephritis [Recovering/Resolving]
  - Hepatitis [Recovering/Resolving]
  - Neutrophilia [Recovering/Resolving]
  - Rash erythematous [Recovered/Resolved]
  - Drug reaction with eosinophilia and systemic symptoms [Recovering/Resolving]

NARRATIVE: CASE EVENT DATE: 201111
